FAERS Safety Report 9173876 (Version 1)
Quarter: 2013Q1

REPORT INFORMATION
  Report Type: Spontaneous
  Country: US (occurrence: None)
  Receive Date: 20130318
  Receipt Date: 20130318
  Transmission Date: 20140127
  Serious: Yes (Hospitalization)
  Sender: FDA-Public Use
  Company Number: SYM-2013-01648

PATIENT
  Age: 17 Year
  Sex: Female

DRUGS (1)
  1. BUPROPION HYDROCHLORIDE (BUPROPION HYDROCHLORIDE) (CONTROLLED RELEASE) (BUPROPION HYDROCHLORIDE) [Suspect]
     Indication: PRODUCT USED FOR UNKNOWN INDICATION
     Route: 048

REACTIONS (16)
  - Overdose [None]
  - Suicide attempt [None]
  - Unresponsive to stimuli [None]
  - Convulsion [None]
  - Dyskinesia [None]
  - Gaze palsy [None]
  - Pupil fixed [None]
  - Hypokalaemic syndrome [None]
  - Acidosis hyperchloraemic [None]
  - Hypocalcaemia [None]
  - Hypoglycaemia [None]
  - Vomiting [None]
  - Memory impairment [None]
  - Depression [None]
  - Judgement impaired [None]
  - Impulse-control disorder [None]
